FAERS Safety Report 8796635 (Version 2)
Quarter: 2013Q4

REPORT INFORMATION
  Report Type: Report from Study
  Country: HK (occurrence: HK)
  Receive Date: 20120919
  Receipt Date: 20131101
  Transmission Date: 20140711
  Serious: Yes (Hospitalization)
  Sender: FDA-Public Use
  Company Number: HK-MERCK-1107USA02552

PATIENT
  Age: 71 Year
  Sex: Female
  Weight: 50.5 kg

DRUGS (56)
  1. CALCIUM CARBONATE [Suspect]
     Indication: OSTEOPOROSIS POSTMENOPAUSAL
     Dosage: 1 DF, QW
     Route: 048
     Dates: start: 20080217, end: 20080912
  2. CALCIUM CARBONATE [Suspect]
     Indication: OSTEOPOROSIS POSTMENOPAUSAL
     Dosage: 1 DF, QW
     Route: 048
     Dates: start: 20080217, end: 20080912
  3. CALCIUM CARBONATE [Suspect]
     Indication: OSTEOPOROSIS POSTMENOPAUSAL
     Dosage: 1 DF, QW
     Route: 048
     Dates: start: 20080217, end: 20080912
  4. CHOLECALCIFEROL [Suspect]
     Indication: OSTEOPOROSIS POSTMENOPAUSAL
     Dosage: 1 DF, QW
     Route: 048
     Dates: start: 20080217, end: 20080912
  5. BLINDED ODANACATIB [Suspect]
     Indication: OSTEOPOROSIS POSTMENOPAUSAL
     Dosage: 1 DF, QW
     Route: 048
     Dates: start: 20080217, end: 20080912
  6. BLINDED PLACEBO [Suspect]
     Indication: OSTEOPOROSIS POSTMENOPAUSAL
     Dosage: 1 DF, QW
     Route: 048
     Dates: start: 20080217, end: 20080912
  7. BLINDED POST TRIAL THERAPY [Suspect]
     Indication: OSTEOPOROSIS POSTMENOPAUSAL
     Dosage: 1 DF, QW
     Route: 048
     Dates: start: 20080217, end: 20080912
  8. BLINDED PRE TRIAL THERAPY [Suspect]
     Indication: OSTEOPOROSIS POSTMENOPAUSAL
     Dosage: 1 DF, QW
     Route: 048
     Dates: start: 20080217, end: 20080912
  9. CALCIUM CARBONATE [Suspect]
     Dosage: 1 DF, QW
     Route: 048
     Dates: start: 20080926, end: 20090207
  10. CALCIUM CARBONATE [Suspect]
     Dosage: 1 DF, QW
     Route: 048
     Dates: start: 20080926, end: 20090207
  11. CALCIUM CARBONATE [Suspect]
     Dosage: 1 DF, QW
     Route: 048
     Dates: start: 20080926, end: 20090207
  12. CHOLECALCIFEROL [Suspect]
     Dosage: 1 DF, QW
     Route: 048
     Dates: start: 20080926, end: 20090207
  13. ODANACATIB [Suspect]
     Dosage: 1 DF, QW
     Route: 048
     Dates: start: 20080926, end: 20090207
  14. BLINDED PLACEBO [Suspect]
     Dosage: 1 DF, QW
     Route: 048
     Dates: start: 20080926, end: 20090207
  15. BLINDED POST TRIAL THERAPY [Suspect]
     Dosage: 1 DF, QW
     Route: 048
     Dates: start: 20080926, end: 20090207
  16. BLINDED PRE TRIAL THERAPY [Suspect]
     Dosage: 1 DF, QW
     Route: 048
     Dates: start: 20080926, end: 20090207
  17. CALCIUM CARBONATE [Suspect]
     Dosage: 1 DF, QW
     Route: 048
     Dates: start: 20090220, end: 20090626
  18. CALCIUM CARBONATE [Suspect]
     Dosage: 1 DF, QW
     Route: 048
     Dates: start: 20090220, end: 20090626
  19. CALCIUM CARBONATE [Suspect]
     Dosage: 1 DF, QW
     Route: 048
     Dates: start: 20090220, end: 20090626
  20. CHOLECALCIFEROL [Suspect]
     Dosage: 1 DF, QW
     Route: 048
     Dates: start: 20090220, end: 20090626
  21. ODANACATIB [Suspect]
     Dosage: 1 DF, QW
     Route: 048
     Dates: start: 20090220, end: 20090626
  22. BLINDED PLACEBO [Suspect]
     Dosage: 1 DF, QW
     Route: 048
     Dates: start: 20090220, end: 20090626
  23. BLINDED POST TRIAL THERAPY [Suspect]
     Dosage: 1 DF, QW
     Route: 048
     Dates: start: 20090220, end: 20090626
  24. BLINDED PRE TRIAL THERAPY [Suspect]
     Dosage: 1 DF, QW
     Route: 048
     Dates: start: 20090220, end: 20090626
  25. CALCIUM CARBONATE [Suspect]
     Dosage: 1 DF, QW
     Route: 048
     Dates: start: 20090710, end: 20100108
  26. CALCIUM CARBONATE [Suspect]
     Dosage: 1 DF, QW
     Route: 048
     Dates: start: 20090710, end: 20100108
  27. CALCIUM CARBONATE [Suspect]
     Dosage: 1 DF, QW
     Route: 048
     Dates: start: 20090710, end: 20100108
  28. CHOLECALCIFEROL [Suspect]
     Dosage: 1 DF, QW
     Route: 048
     Dates: start: 20090710, end: 20100108
  29. ODANACATIB [Suspect]
     Dosage: 1 DF, QW
     Route: 048
     Dates: start: 20090710, end: 20100108
  30. BLINDED PLACEBO [Suspect]
     Dosage: 1 DF, QW
     Route: 048
     Dates: start: 20090710, end: 20100108
  31. BLINDED POST TRIAL THERAPY [Suspect]
     Dosage: 1 DF, QW
     Route: 048
     Dates: start: 20090710, end: 20100108
  32. BLINDED PRE TRIAL THERAPY [Suspect]
     Dosage: 1 DF, QW
     Route: 048
     Dates: start: 20090710, end: 20100108
  33. CALCIUM CARBONATE [Suspect]
     Dosage: 1 DF, QW
     Route: 048
     Dates: start: 20100122
  34. CALCIUM CARBONATE [Suspect]
     Dosage: 1 DF, QW
     Route: 048
     Dates: start: 20100122
  35. CALCIUM CARBONATE [Suspect]
     Dosage: 1 DF, QW
     Route: 048
     Dates: start: 20100122
  36. CHOLECALCIFEROL [Suspect]
     Dosage: 1 DF, QW
     Route: 048
     Dates: start: 20100122
  37. ODANACATIB [Suspect]
     Dosage: 1 DF, QW
     Route: 048
     Dates: start: 20100122
  38. BLINDED PLACEBO [Suspect]
     Dosage: 1 DF, QW
     Route: 048
     Dates: start: 20100122
  39. BLINDED POST TRIAL THERAPY [Suspect]
     Dosage: 1 DF, QW
     Route: 048
     Dates: start: 20100122
  40. BLINDED PRE TRIAL THERAPY [Suspect]
     Dosage: 1 DF, QW
     Route: 048
     Dates: start: 20100122
  41. CHOLECALCIFEROL [Suspect]
     Indication: MEDICAL DIET
     Dosage: 5600 IU, QW
     Route: 048
     Dates: start: 20080125
  42. CALCIUM CARBONATE [Suspect]
     Indication: ROUTINE HEALTH MAINTENANCE
     Dosage: 600 MG, BID
     Route: 048
     Dates: start: 20080125
  43. METOPROLOL [Suspect]
     Dosage: 12.5 MG, ONCE
     Route: 048
     Dates: start: 20110704, end: 20110704
  44. RIVASTIGMINE [Suspect]
     Dosage: 4.5 MG, ONCE
     Route: 048
     Dates: start: 20110704, end: 20110704
  45. ELANTAN [Suspect]
     Dosage: 20 MG, ONCE
     Route: 048
     Dates: start: 20110704, end: 20110704
  46. PEPCIDINE [Suspect]
     Dosage: 20 MG, ONCE
     Route: 048
     Dates: start: 20110704, end: 20110704
  47. PYRIDOXINE [Suspect]
     Dosage: 50 MG, ONCE
     Route: 048
     Dates: start: 20110704, end: 20110704
  48. METFORMIN [Concomitant]
     Indication: DIABETES MELLITUS
     Dosage: 1000 MG, BID
     Route: 048
     Dates: start: 19880715
  49. ASPIRIN [Concomitant]
     Indication: PROPHYLAXIS
     Dosage: 80 MG, QD
     Route: 048
     Dates: start: 20081029, end: 20110801
  50. DILTIAZEM HYDROCHLORIDE [Concomitant]
     Indication: HYPERTENSION
     Dosage: 200 MG, QD
     Route: 048
     Dates: start: 20100203
  51. UREA CREAM [Concomitant]
     Indication: PROPHYLAXIS
     Dosage: 1 DF, BID
     Route: 061
     Dates: start: 20100804
  52. INDAPAMIDE [Concomitant]
     Indication: HYPERTENSION
     Dosage: 2.5 MG, QD
     Route: 048
     Dates: start: 20110119, end: 20110830
  53. LOSARTAN POTASSIUM TABLETS [Concomitant]
     Indication: HYPERTENSION
     Dosage: 100 MG, QD
     Route: 048
     Dates: start: 20110119
  54. AMLODIPINE BESYLATE [Concomitant]
     Indication: HYPERTENSION
     Dosage: 5 MG, QD
     Route: 048
     Dates: start: 20110302, end: 20111111
  55. ATENOLOL [Concomitant]
     Indication: HYPERTENSION
     Dosage: 50 MG, QD
     Route: 048
     Dates: start: 20110202, end: 20111113
  56. PROTAPHAN [Concomitant]
     Indication: DIABETES MELLITUS
     Dosage: 20 IU, QD
     Route: 058
     Dates: start: 20100203, end: 20110804

REACTIONS (1)
  - Drug dispensing error [Recovered/Resolved]
